FAERS Safety Report 4541015-2 (Version None)
Quarter: 2004Q4

REPORT INFORMATION
  Report Type: 
  Country: None (occurrence: None)
  Receive Date: 20041229
  Receipt Date: 20041220
  Transmission Date: 20050328
  Serious: Yes (Other)
  Sender: FDA-Public Use
  Company Number: US-AMGEN-US104097

PATIENT
  Age: 33 Year
  Sex: Female

DRUGS (1)
  1. ENBREL [Suspect]
     Indication: RHEUMATOID ARTHRITIS
     Dates: end: 20031101

REACTIONS (5)
  - AMNESIA [None]
  - BALANCE DISORDER [None]
  - DIPLOPIA [None]
  - HYPOAESTHESIA [None]
  - VISION BLURRED [None]
